FAERS Safety Report 24448433 (Version 2)
Quarter: 2025Q1

REPORT INFORMATION
  Report Type: Spontaneous
  Country: JP (occurrence: JP)
  Receive Date: 20241017
  Receipt Date: 20250110
  Transmission Date: 20250409
  Serious: Yes (Death, Other)
  Sender: ALEXION PHARMACEUTICALS
  Company Number: JP-ASTRAZENECA-240094877_064320_P_1

PATIENT
  Age: 45 Year

DRUGS (10)
  1. ONDEXXYA [Suspect]
     Active Substance: ANDEXANET ALFA
     Indication: Genital haemorrhage
  2. ONDEXXYA [Suspect]
     Active Substance: ANDEXANET ALFA
     Route: 042
  3. ONDEXXYA [Suspect]
     Active Substance: ANDEXANET ALFA
  4. ONDEXXYA [Suspect]
     Active Substance: ANDEXANET ALFA
     Route: 042
  5. APIXABAN [Concomitant]
     Active Substance: APIXABAN
     Indication: Venous thrombosis limb
  6. APIXABAN [Concomitant]
     Active Substance: APIXABAN
     Route: 048
  7. APIXABAN [Concomitant]
     Active Substance: APIXABAN
     Route: 065
  8. APIXABAN [Concomitant]
     Active Substance: APIXABAN
     Route: 065
  9. APIXABAN [Concomitant]
     Active Substance: APIXABAN
  10. APIXABAN [Concomitant]
     Active Substance: APIXABAN
     Route: 048

REACTIONS (2)
  - Ovarian cancer [Fatal]
  - Sarcoma [Fatal]
